FAERS Safety Report 15124158 (Version 13)
Quarter: 2018Q4

REPORT INFORMATION
  Report Type: Spontaneous
  Country: CA (occurrence: CA)
  Receive Date: 20180710
  Receipt Date: 20181228
  Transmission Date: 20190204
  Serious: Yes (Hospitalization, Other)
  Sender: FDA-Public Use
  Company Number: CA-CELLTRION INC.-2017CA015349

PATIENT

DRUGS (18)
  1. INFLECTRA [Suspect]
     Active Substance: INFLIXIMAB-DYYB
     Dosage: 3 MG/KG (RECEIVED AT 34 WEEKS AFTER HER LAST INFUSION)
     Route: 042
     Dates: start: 20180726, end: 20180726
  2. INFLECTRA [Suspect]
     Active Substance: INFLIXIMAB-DYYB
     Dosage: 3 MG/KG (RECEIVED AT 34 WEEKS AFTER HER LAST INFUSION)
     Route: 042
     Dates: start: 20181023
  3. INFLECTRA [Suspect]
     Active Substance: INFLIXIMAB-DYYB
     Dosage: 3 MG/KG (RECEIVED AT 34 WEEKS AFTER HER LAST INFUSION)
     Route: 042
     Dates: start: 20181218
  4. LYRICA [Concomitant]
     Active Substance: PREGABALIN
     Dosage: UNK
     Route: 065
  5. FOLIC ACID. [Concomitant]
     Active Substance: FOLIC ACID
     Dosage: UNK
     Route: 065
  6. METHOTREXATE. [Concomitant]
     Active Substance: METHOTREXATE
     Dosage: 25 MG, 1/WEEK
     Route: 065
     Dates: start: 2014
  7. DILAUDID [Concomitant]
     Active Substance: HYDROMORPHONE HYDROCHLORIDE
     Dosage: UNK
     Route: 065
  8. PLAQUENIL                          /00072602/ [Concomitant]
     Active Substance: HYDROXYCHLOROQUINE DIPHOSPHATE
     Dosage: UNK
     Route: 065
  9. VITAMIN D                          /00107901/ [Concomitant]
     Active Substance: ERGOCALCIFEROL
     Dosage: UNK
     Route: 065
  10. HYDROXYCHLOROQUINE [Concomitant]
     Active Substance: HYDROXYCHLOROQUINE
     Dosage: 2 DF, DAILY
     Route: 065
     Dates: start: 2017
  11. HYDROMORPH CONTIN [Concomitant]
     Active Substance: HYDROMORPHONE
     Dosage: UNK
     Route: 065
  12. PREDNISONE. [Concomitant]
     Active Substance: PREDNISONE
     Dosage: UNK
     Route: 065
  13. ALENDRONATE SODIUM. [Concomitant]
     Active Substance: ALENDRONATE SODIUM
     Dosage: UNK
  14. INFLECTRA [Suspect]
     Active Substance: INFLIXIMAB-DYYB
     Dosage: 3 MG/KG (RECEIVED AT 34 WEEKS AFTER HER LAST INFUSION)
     Route: 042
     Dates: start: 20181024
  15. INFLECTRA [Suspect]
     Active Substance: INFLIXIMAB-DYYB
     Indication: RHEUMATOID ARTHRITIS
     Dosage: 348 MG, EVERY 0, 2, 6 WEEKS, THEN EVERY 6 WEEKS
     Route: 042
     Dates: start: 20171011, end: 20171011
  16. INFLECTRA [Suspect]
     Active Substance: INFLIXIMAB-DYYB
     Dosage: 348 MG, EVERY 0, 2, 6 WEEKS, THEN EVERY 6 WEEKS
     Route: 042
     Dates: start: 20171128
  17. FERROUS SULFATE. [Concomitant]
     Active Substance: FERROUS SULFATE
     Dosage: UNK
     Route: 065
  18. CALCIUM [Concomitant]
     Active Substance: CALCIUM
     Dosage: UNK

REACTIONS (26)
  - Weight decreased [Unknown]
  - Vomiting [Unknown]
  - Morning sickness [Unknown]
  - Heart rate irregular [Unknown]
  - Lower respiratory tract infection bacterial [Unknown]
  - Vomiting [Not Recovered/Not Resolved]
  - Blood pressure fluctuation [Unknown]
  - Pyrexia [Unknown]
  - Rectal haemorrhage [Unknown]
  - Cough [Unknown]
  - Palpitations [Recovered/Resolved]
  - Pain [Unknown]
  - Off label use [Unknown]
  - Tachycardia [Recovered/Resolved]
  - Ankle fracture [Unknown]
  - Bronchitis [Not Recovered/Not Resolved]
  - Influenza [Unknown]
  - Product use issue [Unknown]
  - Sinusitis [Not Recovered/Not Resolved]
  - Haemoptysis [Unknown]
  - Productive cough [Unknown]
  - Haematochezia [Unknown]
  - Bronchospasm [Unknown]
  - Weight increased [Unknown]
  - Arrhythmia [Recovered/Resolved]
  - Product use issue [Unknown]

NARRATIVE: CASE EVENT DATE: 20171128
